FAERS Safety Report 6628022-0 (Version None)
Quarter: 2010Q1

REPORT INFORMATION
  Report Type: 
  Country: None (occurrence: None)
  Receive Date: 20100311
  Receipt Date: 20090620
  Transmission Date: 20100710
  Serious: No
  Sender: FDA-Public Use
  Company Number: A0792989A

PATIENT
  Sex: Male

DRUGS (1)
  1. NICORETTE [Suspect]
     Dates: start: 20090618

REACTIONS (2)
  - BURNING SENSATION [None]
  - RASH [None]
